FAERS Safety Report 5781426-0 (Version None)
Quarter: 2008Q2

REPORT INFORMATION
  Report Type: 
  Country: None (occurrence: None)
  Receive Date: 20080623
  Receipt Date: 20080606
  Transmission Date: 20081010
  Serious: Yes (Other)
  Sender: FDA-Public Use
  Company Number: US-BAYER-200816855NA

PATIENT
  Age: 35 Year
  Sex: Female
  Weight: 57 kg

DRUGS (1)
  1. MIRENA [Suspect]
     Indication: CONTRACEPTION
     Route: 015
     Dates: start: 20080114, end: 20080126

REACTIONS (9)
  - ABDOMINAL DISTENSION [None]
  - BREAST CANCER [None]
  - HEADACHE [None]
  - HYPOAESTHESIA [None]
  - INTRA-ABDOMINAL HAEMATOMA [None]
  - LOSS OF CONSCIOUSNESS [None]
  - LUNG NEOPLASM [None]
  - MASS [None]
  - SARCOIDOSIS [None]
